FAERS Safety Report 7079448-5 (Version None)
Quarter: 2010Q4

REPORT INFORMATION
  Report Type: 
  Country: None (occurrence: None)
  Receive Date: 20101102
  Receipt Date: 20101020
  Transmission Date: 20110411
  Serious: Yes (Other)
  Sender: FDA-Public Use
  Company Number: US-CELGENEUS-163-21880-10010829

PATIENT
  Sex: Female

DRUGS (1)
  1. REVLIMID [Suspect]
     Route: 048
     Dates: start: 20090707

REACTIONS (6)
  - DIARRHOEA [None]
  - FATIGUE [None]
  - MYALGIA [None]
  - PRURITUS [None]
  - THROMBOCYTOPENIA [None]
  - TUMOUR FLARE [None]
